FAERS Safety Report 4548892-X (Version None)
Quarter: 2004Q4

REPORT INFORMATION
  Report Type: 
  Country: None (occurrence: None)
  Receive Date: 20041220
  Receipt Date: 20040329
  Transmission Date: 20050328
  Serious: Yes (Hospitalization, Other)
  Sender: FDA-Public Use
  Company Number: USA040363491

PATIENT
  Age: 29 Year
  Sex: Female
  Weight: 123 kg

DRUGS (2)
  1. HUMALOG [Suspect]
     Indication: GESTATIONAL DIABETES
  2. HUMULIN N [Suspect]
     Indication: GESTATIONAL DIABETES

REACTIONS (2)
  - DRUG HYPERSENSITIVITY [None]
  - URTICARIA [None]
